FAERS Safety Report 5822083-4 (Version None)
Quarter: 2008Q3

REPORT INFORMATION
  Report Type: 
  Country: None (occurrence: None)
  Receive Date: 20080725
  Receipt Date: 20080609
  Transmission Date: 20090109
  Serious: Yes (Death, Other)
  Sender: FDA-Public Use
  Company Number: NL-BAYER-200820451GPV

PATIENT
  Age: 47 Year
  Sex: Female
  Weight: 52 kg

DRUGS (4)
  1. MABCAMPATH [Suspect]
     Indication: BONE MARROW CONDITIONING REGIMEN
     Route: 050
     Dates: start: 20070214, end: 20070214
  2. FLUDARABINE PHOSPHATE [Suspect]
     Indication: BONE MARROW CONDITIONING REGIMEN
     Route: 048
     Dates: start: 20070204, end: 20070209
  3. ANTI-THYMOCYTE GLOBULIN NOS [Suspect]
     Indication: BONE MARROW CONDITIONING REGIMEN
     Route: 042
     Dates: start: 20070210, end: 20070212
  4. BUSULFAN [Suspect]
     Indication: BONE MARROW CONDITIONING REGIMEN
     Route: 042
     Dates: start: 20070207, end: 20070208

REACTIONS (4)
  - CYTOMEGALOVIRUS INFECTION [None]
  - EPSTEIN-BARR VIRUS ASSOCIATED LYMPHOPROLIFERATIVE DISORDER [None]
  - EPSTEIN-BARR VIRUS INFECTION [None]
  - MULTI-ORGAN FAILURE [None]
